FAERS Safety Report 6110804-5 (Version None)
Quarter: 2009Q1

REPORT INFORMATION
  Report Type: 
  Country: None (occurrence: None)
  Receive Date: 20090311
  Receipt Date: 20090304
  Transmission Date: 20090719
  Serious: Yes (Hospitalization)
  Sender: FDA-Public Use
  Company Number: FR-JNJFOC-20090300815

PATIENT
  Sex: Female

DRUGS (10)
  1. ARESTAL [Suspect]
     Indication: GASTROENTERITIS
     Route: 048
  2. CEFACLOR [Suspect]
     Indication: GASTROENTERITIS
     Route: 048
  3. PARACETAMOL [Concomitant]
     Indication: GASTROENTERITIS
  4. LEVOTHYROXINE SODIUM [Concomitant]
  5. EUPRESSYL [Concomitant]
  6. NISISCO [Concomitant]
  7. AERIUS [Concomitant]
  8. AVANDAMET [Concomitant]
  9. NOCTRAN [Concomitant]
  10. TRANXENE [Concomitant]

REACTIONS (3)
  - PRURITUS [None]
  - PURPURA [None]
  - RASH MACULO-PAPULAR [None]
